FAERS Safety Report 21246929 (Version 1)
Quarter: 2022Q3

REPORT INFORMATION
  Report Type: Spontaneous
  Country: IN (occurrence: None)
  Receive Date: 20220823
  Receipt Date: 20220823
  Transmission Date: 20221027
  Serious: Yes (Life-Threatening, Other)
  Sender: FDA-Public Use
  Company Number: None

PATIENT
  Age: 45 Year
  Sex: Female

DRUGS (1)
  1. CEFUROXIME SODIUM [Suspect]
     Active Substance: CEFUROXIME SODIUM
     Indication: Postoperative care
     Dosage: FREQUENCY : TWICE A DAY;?
     Route: 048
     Dates: start: 20220812, end: 20220818

REACTIONS (8)
  - Procedural pain [None]
  - Abdominal pain [None]
  - Incision site pain [None]
  - Choking [None]
  - Oesophageal obstruction [None]
  - Product complaint [None]
  - Product physical consistency issue [None]
  - Product size issue [None]

NARRATIVE: CASE EVENT DATE: 20220814
